FAERS Safety Report 14012061 (Version 1)
Quarter: 2017Q3

REPORT INFORMATION
  Report Type: Spontaneous
  Country: US (occurrence: US)
  Receive Date: 20170926
  Receipt Date: 20170926
  Transmission Date: 20171128
  Serious: Yes (Other)
  Sender: FDA-Public Use
  Company Number: None

PATIENT
  Age: 63 Year
  Sex: Female
  Weight: 63.9 kg

DRUGS (15)
  1. WELCHOL [Concomitant]
     Active Substance: COLESEVELAM HYDROCHLORIDE
  2. CINNAMON. [Concomitant]
     Active Substance: CINNAMON
  3. MAGNESIUM [Concomitant]
     Active Substance: MAGNESIUM
  4. NASONEX [Concomitant]
     Active Substance: MOMETASONE FUROATE
  5. VITAMIN D [Concomitant]
     Active Substance: CHOLECALCIFEROL
  6. FISH OIL [Concomitant]
     Active Substance: FISH OIL
  7. ADVAIR DISKUS [Concomitant]
     Active Substance: FLUTICASONE PROPIONATE\SALMETEROL XINAFOATE
  8. COENZYME Q10 [Concomitant]
     Active Substance: UBIDECARENONE
  9. SYNTHROID [Concomitant]
     Active Substance: LEVOTHYROXINE SODIUM
  10. OMEPRAZOLE. [Concomitant]
     Active Substance: OMEPRAZOLE
  11. MULTIVITAMIN [Concomitant]
     Active Substance: VITAMINS
  12. ATOROSTATIN CACLIUM [Concomitant]
  13. CALCIUM [Concomitant]
     Active Substance: CALCIUM
  14. YUVAFEM [Suspect]
     Active Substance: ESTRADIOL HEMIHYDRATE
     Indication: ATROPHIC VULVOVAGINITIS
     Dosage: ?          QUANTITY:1 TABLET(S);OTHER FREQUENCY:2 TIMES PER WEEK;?
     Route: 067
     Dates: start: 20170619, end: 20170924
  15. VALSARTAN. [Concomitant]
     Active Substance: VALSARTAN

REACTIONS (3)
  - Pruritus [None]
  - Product substitution issue [None]
  - Burning sensation [None]

NARRATIVE: CASE EVENT DATE: 20170925
